FAERS Safety Report 13159467 (Version 1)
Quarter: 2017Q1

REPORT INFORMATION
  Report Type: Spontaneous
  Country: BR (occurrence: BR)
  Receive Date: 20170127
  Receipt Date: 20170127
  Transmission Date: 20170428
  Serious: Yes (Hospitalization)
  Sender: FDA-Public Use
  Company Number: BR-BRACCO-000696

PATIENT
  Age: 55 Year
  Sex: Female

DRUGS (1)
  1. IOPAMIRON [Suspect]
     Active Substance: IOPAMIDOL
     Indication: COMPUTERISED TOMOGRAM ABDOMEN
     Route: 042
     Dates: start: 20170117, end: 20170117

REACTIONS (7)
  - Pulmonary infarction [Unknown]
  - Cardiac failure [Unknown]
  - Product deposit [Unknown]
  - Pulmonary haemorrhage [Unknown]
  - Toxicity to various agents [Unknown]
  - Acute pulmonary oedema [Unknown]
  - Foreign body embolism [Unknown]

NARRATIVE: CASE EVENT DATE: 20170117
